FAERS Safety Report 20493698 (Version 1)
Quarter: 2022Q1

REPORT INFORMATION
  Report Type: Spontaneous
  Country: US (occurrence: US)
  Receive Date: 20220221
  Receipt Date: 20220221
  Transmission Date: 20220423
  Serious: No
  Sender: FDA-Public Use
  Company Number: US-TARO-2021TAR01163

PATIENT

DRUGS (2)
  1. TRETINOIN [Suspect]
     Active Substance: TRETINOIN
     Indication: Acrochordon
     Dosage: UNK, FACE AND ^UNDER CHEST^
     Route: 061
  2. TRETINOIN [Suspect]
     Active Substance: TRETINOIN
     Indication: Skin discolouration

REACTIONS (4)
  - Rash [Unknown]
  - Face injury [Unknown]
  - Skin burning sensation [Unknown]
  - Product use in unapproved indication [Unknown]
